FAERS Safety Report 6204909-8 (Version None)
Quarter: 2009Q2

REPORT INFORMATION
  Report Type: 
  Country: None (occurrence: None)
  Receive Date: 20090526
  Receipt Date: 20090514
  Transmission Date: 20091009
  Serious: Yes (Life-Threatening)
  Sender: FDA-Public Use
  Company Number: TCI2009A01392

PATIENT
  Age: 68 Year
  Sex: Male

DRUGS (7)
  1. TAKEPRON OD(LANSOPRAZOLE) [Suspect]
     Indication: GASTRIC ULCER
     Dosage: 15 MG (15 MG, 1 IN 1 D) PER ORAL
     Route: 048
     Dates: start: 20090413, end: 20090419
  2. PLAVIX [Suspect]
     Indication: THROMBOSIS PROPHYLAXIS
     Dosage: 75 MG (75 MG, 1 IN 1 D) PER ORAL
     Route: 048
     Dates: start: 20090413
  3. BLOPRESS TABLETS 4 (CANDESARTAN CILEXETIL) [Concomitant]
  4. CRESTOR [Concomitant]
  5. WARFARIN (WARFARIN POTASSIUM) [Concomitant]
  6. SIGMART (NICORANDIL) [Concomitant]
  7. ASPIRIN [Concomitant]

REACTIONS (2)
  - FEELING COLD [None]
  - MYOCARDIAL INFARCTION [None]
